FAERS Safety Report 6189794-5 (Version None)
Quarter: 2009Q2

REPORT INFORMATION
  Report Type: 
  Country: None (occurrence: None)
  Receive Date: 20090514
  Receipt Date: 20090430
  Transmission Date: 20091009
  Serious: Yes (Other)
  Sender: FDA-Public Use
  Company Number: CA-BAYER-200919958GPV

PATIENT
  Age: 73 Year
  Sex: Male

DRUGS (9)
  1. ASPIRIN [Suspect]
     Indication: CARDIOVASCULAR DISORDER
  2. WARFARIN SODIUM [Concomitant]
     Indication: CARDIOVASCULAR DISORDER
  3. BETA-BLOCKERS [Concomitant]
     Indication: CARDIOVASCULAR DISORDER
  4. ANGIOTENSIN-CONVERTING ENZYME INHIBITOR NOS [Concomitant]
     Indication: CARDIOVASCULAR DISORDER
  5. STATINS [Concomitant]
     Indication: CARDIOVASCULAR DISORDER
  6. LASIX [Concomitant]
     Indication: CARDIOVASCULAR DISORDER
  7. LEVOTHYROXINE SODIUM [Concomitant]
     Indication: CARDIOVASCULAR DISORDER
  8. FERROUS GLUCONATE [Concomitant]
     Indication: IRON DEFICIENCY ANAEMIA
  9. AMIODARONE [Concomitant]
     Indication: CARDIOVASCULAR DISORDER

REACTIONS (2)
  - COLITIS [None]
  - PHLEBITIS [None]
